FAERS Safety Report 18493528 (Version 3)
Quarter: 2020Q4

REPORT INFORMATION
  Report Type: Report from Study
  Country: CO (occurrence: CO)
  Receive Date: 20201111
  Receipt Date: 20201215
  Transmission Date: 20210114
  Serious: Yes (Other)
  Sender: FDA-Public Use
  Company Number: CO-TAKEDA-2020TUS047350

PATIENT
  Age: 12 Year
  Sex: Male
  Weight: 22 kg

DRUGS (3)
  1. IDURSULFASE [Suspect]
     Active Substance: IDURSULFASE
     Indication: MUCOPOLYSACCHARIDOSIS II
     Dosage: 12 MILLIGRAM, 1/WEEK
     Route: 042
     Dates: start: 20130628
  2. LEVETIRACETAM. [Concomitant]
     Active Substance: LEVETIRACETAM
     Dosage: UNK
     Route: 065
  3. RISPERIDONE. [Concomitant]
     Active Substance: RISPERIDONE
     Dosage: UNK
     Route: 065

REACTIONS (9)
  - Inappropriate schedule of product administration [Recovered/Resolved]
  - Diarrhoea [Not Recovered/Not Resolved]
  - Staring [Recovering/Resolving]
  - Secretion discharge [Recovering/Resolving]
  - Seizure [Recovering/Resolving]
  - Ophthalmoplegia [Recovering/Resolving]
  - Influenza [Not Recovered/Not Resolved]
  - Depressed mood [Not Recovered/Not Resolved]
  - Muscle rigidity [Recovering/Resolving]

NARRATIVE: CASE EVENT DATE: 20201026
